FAERS Safety Report 8791458 (Version 1)
Quarter: 2012Q4

REPORT INFORMATION
  Report Type: Spontaneous
  Country: US (occurrence: None)
  Receive Date: 20120912
  Receipt Date: 20120912
  Transmission Date: 20130627
  Serious: Yes (Death)
  Sender: FDA-Public Use
  Company Number: FK201202604

PATIENT
  Age: 65 Year
  Sex: Female

DRUGS (4)
  1. CEFAZOLIN [Suspect]
     Route: 042
  2. VANCOMYCIN [Concomitant]
  3. TORADOL (KETOROLAC TROMETHAMINE) [Concomitant]
  4. CIPROFLOXACIN [Concomitant]

REACTIONS (4)
  - Tachypnoea [None]
  - Circulatory collapse [None]
  - Brain injury [None]
  - Electroencephalogram abnormal [None]
